FAERS Safety Report 4906302-4 (Version None)
Quarter: 2006Q1

REPORT INFORMATION
  Report Type: 
  Country: None (occurrence: None)
  Receive Date: 20060206
  Receipt Date: 20060120
  Transmission Date: 20060701
  Serious: Yes (Hospitalization)
  Sender: FDA-Public Use
  Company Number: 06H-087-0304513-00

PATIENT
  Age: 69 Year
  Sex: Male
  Weight: 58.9 kg

DRUGS (10)
  1. PRECEDEX [Suspect]
     Indication: SEDATION
     Dosage: 0.5-0.7 MCG/KG/HR, INTRAVENOUS
     Route: 042
     Dates: start: 20051221, end: 20051222
  2. LANSOPRAZOLE [Concomitant]
  3. REBAMIPIDE (REBAMIPIDE) [Concomitant]
  4. SENNOSIDE (SENNOSIDE A) [Concomitant]
  5. NITROGLYCERIN [Concomitant]
  6. ETIZOLAM (ETIZOLAM) [Concomitant]
  7. FERROUS SULFATE TAB [Concomitant]
  8. ASPIRIN [Concomitant]
  9. ASCORBIC ACID [Concomitant]
  10. CALCIUM PANTOTHENATE [Concomitant]

REACTIONS (3)
  - ABDOMINAL PAIN [None]
  - POST PROCEDURAL COMPLICATION [None]
  - POSTOPERATIVE CONSTIPATION [None]
